FAERS Safety Report 5465846-X (Version None)
Quarter: 2007Q3

REPORT INFORMATION
  Report Type: 
  Country: None (occurrence: None)
  Receive Date: 20070924
  Receipt Date: 20070917
  Transmission Date: 20080115
  Serious: Yes (Other)
  Sender: FDA-Public Use
  Company Number: PHBS2007BR15428

PATIENT
  Sex: Female
  Weight: 87 kg

DRUGS (7)
  1. CORTISONE ACETATE TAB [Concomitant]
     Indication: BACK PAIN
  2. OMEPRAZOLE [Concomitant]
     Indication: GASTRITIS EROSIVE
     Dates: start: 20000101
  3. FRISIUM [Concomitant]
     Indication: EPILEPSY
     Dosage: 20 MG, QD
  4. SIMVASTATIN [Concomitant]
     Indication: HYPERCHOLESTEROLAEMIA
     Dosage: 1 TABLET/DAY
     Route: 048
  5. SIMVASTATIN [Concomitant]
     Dosage: 2 TABLETS/DAY
     Route: 048
  6. SENNA ALEXANDRINA [Concomitant]
  7. TRILEPTAL [Suspect]
     Indication: EPILEPSY
     Dosage: 600 MG, BID
     Route: 048

REACTIONS (18)
  - ANXIETY [None]
  - BEDRIDDEN [None]
  - BREAST MASS [None]
  - CONVULSION [None]
  - DRUG WITHDRAWAL SYNDROME [None]
  - EMOTIONAL DISORDER [None]
  - EPILEPSY [None]
  - FEELING ABNORMAL [None]
  - FEELING OF BODY TEMPERATURE CHANGE [None]
  - FEELING OF DESPAIR [None]
  - HYPERHIDROSIS [None]
  - HYPERTENSION [None]
  - HYPOAESTHESIA ORAL [None]
  - INSOMNIA [None]
  - MENTAL DISORDER [None]
  - PARAESTHESIA [None]
  - TACHYCARDIA [None]
  - TENSION [None]
